FAERS Safety Report 15697607 (Version 1)
Quarter: 2018Q4

REPORT INFORMATION
  Report Type: Spontaneous
  Country: CZ (occurrence: CZ)
  Receive Date: 20181207
  Receipt Date: 20181207
  Transmission Date: 20190205
  Serious: Yes (Other)
  Sender: FDA-Public Use
  Company Number: CZ-TEVA-2018-CZ-983496

PATIENT
  Age: 82 Year
  Sex: Female

DRUGS (5)
  1. FENTANYL. [Concomitant]
     Active Substance: FENTANYL
     Dosage: GRADUAL DOSE TITRATION UP TO 50 U/H
     Route: 062
  2. CARBOPLATIN. [Suspect]
     Active Substance: CARBOPLATIN
     Indication: LUNG NEOPLASM MALIGNANT
     Route: 042
  3. TRANSTEC [Concomitant]
     Active Substance: BUPRENORPHINE
     Dosage: DOSAGE TITRATION UP TO 70 U/H
     Route: 062
  4. GABAPENTIN. [Suspect]
     Active Substance: GABAPENTIN
     Indication: RESTLESS LEGS SYNDROME
     Route: 048
  5. PREGABALIN. [Suspect]
     Active Substance: PREGABALIN
     Indication: RESTLESS LEGS SYNDROME
     Route: 048

REACTIONS (3)
  - Anaemia [Recovered/Resolved]
  - Restless legs syndrome [Recovering/Resolving]
  - Drug intolerance [Recovered/Resolved]
